FAERS Safety Report 6079646-3 (Version None)
Quarter: 2009Q1

REPORT INFORMATION
  Report Type: 
  Country: None (occurrence: None)
  Receive Date: 20090212
  Receipt Date: 20090121
  Transmission Date: 20090719
  Serious: Yes (Other)
  Sender: FDA-Public Use
  Company Number: 151629

PATIENT
  Age: 21 Month
  Sex: Male

DRUGS (7)
  1. ETOPOSIDE [Suspect]
     Indication: RHABDOMYOSARCOMA
     Dosage: 100 MG/M2, EVERY 3 WEEKS
  2. VINCRISTINE SULFATE [Suspect]
     Indication: RHABDOMYOSARCOMA
     Dosage: 1.5 MG/M2, EVERY 3 WEEKS
  3. DACTINOMYCIN [Suspect]
     Indication: RHABDOMYOSARCOMA
     Dosage: .5 MG/M2, EVERY 3 WEEKS
  4. DACTINOMYCIN [Suspect]
     Indication: RHABDOMYOSARCOMA
     Dosage: 2.2 G/M2, EVERY 3 WEEKS
  5. IFOSFAMIDE [Suspect]
     Indication: RHABDOMYOSARCOMA
     Dosage: 1.8 G/M2, EVERY 3 WEKS
  6. EPIRUBICIN [Concomitant]
  7. IFOSFAMIDE [Suspect]
     Indication: RHABDOMYOSARCOMA
     Dosage: 1.8 G /M2, EVERY 3 WEEKS

REACTIONS (16)
  - ABDOMINAL DISTENSION [None]
  - ASCITES [None]
  - BLOOD ALBUMIN DECREASED [None]
  - BLOOD BICARBONATE INCREASED [None]
  - BLOOD PH INCREASED [None]
  - DYSPNOEA [None]
  - FEBRILE NEUTROPENIA [None]
  - FIBRIN D DIMER INCREASED [None]
  - HEPATOMEGALY [None]
  - LUNG INFILTRATION [None]
  - PANCYTOPENIA [None]
  - PLEURAL EFFUSION [None]
  - PO2 DECREASED [None]
  - PROTHROMBIN TIME PROLONGED [None]
  - VENOOCCLUSIVE LIVER DISEASE [None]
  - WEIGHT INCREASED [None]
